FAERS Safety Report 6639896-1 (Version None)
Quarter: 2010Q1

REPORT INFORMATION
  Report Type: 
  Country: None (occurrence: None)
  Receive Date: 20100318
  Receipt Date: 20100309
  Transmission Date: 20100710
  Serious: Yes (Other)
  Sender: FDA-Public Use
  Company Number: US-ASTRAZENECA-2010SE06620

PATIENT
  Age: 13 Year
  Sex: Female
  Weight: 59.9 kg

DRUGS (2)
  1. SEROQUEL XR [Suspect]
     Indication: AFFECTIVE DISORDER
     Route: 048
     Dates: start: 20100204, end: 20100218
  2. YAZ [Suspect]

REACTIONS (4)
  - BIPOLAR I DISORDER [None]
  - HALLUCINATION, AUDITORY [None]
  - HOT FLUSH [None]
  - INTENTIONAL SELF-INJURY [None]
